FAERS Safety Report 16966372 (Version 1)
Quarter: 2019Q4

REPORT INFORMATION
  Report Type: Spontaneous
  Country: US (occurrence: US)
  Receive Date: 20190910
  Receipt Date: 20190910
  Transmission Date: 20200122
  Serious: Yes (Hospitalization)
  Sender: FDA-Public Use
  Company Number: None

PATIENT
  Age: 51 Year
  Sex: Female

DRUGS (7)
  1. PROMACTA [Suspect]
     Active Substance: ELTROMBOPAG OLAMINE
     Indication: IMMUNE THROMBOCYTOPENIC PURPURA
     Route: 048
     Dates: start: 20190813
  2. TAMOXIFEN [Suspect]
     Active Substance: TAMOXIFEN
  3. WARFARIN [Concomitant]
     Active Substance: WARFARIN
  4. ATORVASTATIN [Concomitant]
     Active Substance: ATORVASTATIN
  5. FERROUS SULF [Concomitant]
     Active Substance: FERROUS SULFATE
  6. PREDNISONE. [Concomitant]
     Active Substance: PREDNISONE
  7. ELIQUIS [Concomitant]
     Active Substance: APIXABAN

REACTIONS (1)
  - Myocardial infarction [None]
